FAERS Safety Report 14588894 (Version 1)
Quarter: 2018Q1

REPORT INFORMATION
  Report Type: Spontaneous
  Country: US (occurrence: US)
  Receive Date: 20180301
  Receipt Date: 20180301
  Transmission Date: 20180509
  Serious: No
  Sender: FDA-Public Use
  Company Number: US-LUNDBECK-DKLU2041534

PATIENT
  Age: 58 Year
  Sex: Female

DRUGS (2)
  1. NORTHERA [Suspect]
     Active Substance: DROXIDOPA
     Route: 065
     Dates: start: 201712, end: 201712
  2. NORTHERA [Suspect]
     Active Substance: DROXIDOPA
     Indication: AUTONOMIC NEUROPATHY
     Route: 065
     Dates: start: 201712

REACTIONS (5)
  - Dizziness [Unknown]
  - Retching [Unknown]
  - Vomiting [Unknown]
  - Confusional state [Unknown]
  - Headache [Unknown]

NARRATIVE: CASE EVENT DATE: 201712
